FAERS Safety Report 12118121 (Version 1)
Quarter: 2016Q1

REPORT INFORMATION
  Report Type: Spontaneous
  Country: JP (occurrence: JP)
  Receive Date: 20160226
  Receipt Date: 20160226
  Transmission Date: 20160526
  Serious: Yes (Life-Threatening, Other)
  Sender: FDA-Public Use
  Company Number: JP-ACCORD-038225

PATIENT
  Age: 37 Year
  Sex: Male

DRUGS (2)
  1. MITOMYCIN. [Suspect]
     Active Substance: MITOMYCIN
     Indication: ANAL CANCER STAGE IV
     Dosage: MITOMYCIN C (10MG/M(2) ON DAYS 1 AND 29)
  2. FLUOROURACIL. [Suspect]
     Active Substance: FLUOROURACIL
     Indication: ANAL CANCER STAGE IV
     Dosage: 1000MG/M(2) ON DAYS 1-4 AND 29-32)

REACTIONS (4)
  - Thrombocytopenia [Unknown]
  - Radiation skin injury [Unknown]
  - Leukopenia [Unknown]
  - Neutropenia [Unknown]
